FAERS Safety Report 15795898 (Version 2)
Quarter: 2019Q3

REPORT INFORMATION
  Report Type: Spontaneous
  Country: US (occurrence: US)
  Receive Date: 20190107
  Receipt Date: 20190708
  Transmission Date: 20191004
  Serious: No
  Sender: FDA-Public Use
  Company Number: US-MYLANLABS-2018M1093401

PATIENT
  Sex: Female
  Weight: 75 kg

DRUGS (1)
  1. RANITIDINE. [Suspect]
     Active Substance: RANITIDINE
     Indication: HEADACHE
     Dosage: UNK UNK, PRN
     Route: 048

REACTIONS (1)
  - Off label use [Not Recovered/Not Resolved]
